FAERS Safety Report 10487919 (Version 4)
Quarter: 2019Q3

REPORT INFORMATION
  Report Type: Report from Study
  Country: CA (occurrence: CA)
  Receive Date: 20141001
  Receipt Date: 20190729
  Transmission Date: 20191004
  Serious: Yes (Hospitalization)
  Sender: FDA-Public Use
  Company Number: CA-PFIZER INC-2014265517

PATIENT
  Age: 72 Year
  Sex: Female

DRUGS (15)
  1. ROSUVASTATIN. [Suspect]
     Active Substance: ROSUVASTATIN
     Indication: DYSLIPIDAEMIA
     Dosage: 10 MG, 1X/DAY
  2. NOVORAPID [Suspect]
     Active Substance: INSULIN ASPART
     Dosage: 20-6-12-0 (UNITS)
  3. ASPIRIN. [Suspect]
     Active Substance: ASPIRIN
     Indication: MYOCARDIAL INFARCTION
     Dosage: 325 MG, 1X/DAY
  4. NOVOLIN [Suspect]
     Active Substance: INSULIN HUMAN
     Dosage: 84 UNITS
     Route: 058
  5. AMLODIPINE BESILATE [Suspect]
     Active Substance: AMLODIPINE BESYLATE
     Indication: HYPERTENSION
     Dosage: 10 MG, 1X/DAY
  6. INDAPAMIDE. [Suspect]
     Active Substance: INDAPAMIDE
     Indication: HYPERTENSION
     Dosage: 1.25 MG, 1X/DAY
  7. NOVOLIN [Suspect]
     Active Substance: INSULIN HUMAN
     Dosage: 0-0-0-9 (UNITS)
  8. PARACETAMOL [Suspect]
     Active Substance: ACETAMINOPHEN
     Indication: PAIN
     Dosage: 650 MG, 4X/DAY,ONCE 4-6 HOURS AS NEEDED
  9. RAMIPRIL. [Suspect]
     Active Substance: RAMIPRIL
     Dosage: 10 MG, DAILY
  10. CLONIDINE. [Suspect]
     Active Substance: CLONIDINE
     Indication: HYPERTENSION
     Dosage: 0.2 MG, 2X/DAY
  11. NOVOLIN [Suspect]
     Active Substance: INSULIN HUMAN
     Indication: DIABETES MELLITUS
     Dosage: 30/70, 48-0-36 (UNITS)
     Route: 030
  12. ACEBUTOLOL [Suspect]
     Active Substance: ACEBUTOLOL
     Indication: CHRONIC KIDNEY DISEASE
     Dosage: 100 MG, 2X/DAY
  13. RAMIPRIL. [Suspect]
     Active Substance: RAMIPRIL
     Indication: HYPERTENSION
     Dosage: 5 MG, 1X/DAY
  14. ASPIRIN. [Suspect]
     Active Substance: ASPIRIN
     Dosage: 81 MG, 1X/DAY
  15. NOVORAPID [Suspect]
     Active Substance: INSULIN ASPART
     Indication: DIABETES MELLITUS
     Dosage: 17-17-17 (UNITS)

REACTIONS (4)
  - Hypoglycaemia [Recovering/Resolving]
  - Fall [Recovered/Resolved]
  - Hypotension [Recovering/Resolving]
  - Blood creatine phosphokinase increased [Recovered/Resolved]
